FAERS Safety Report 16111944 (Version 1)
Quarter: 2019Q1

REPORT INFORMATION
  Report Type: Spontaneous
  Country: US (occurrence: US)
  Receive Date: 20190325
  Receipt Date: 20190325
  Transmission Date: 20190418
  Serious: Yes (Hospitalization, Other)
  Sender: FDA-Public Use
  Company Number: US-ROCHE-2285424

PATIENT
  Age: 73 Year
  Sex: Female
  Weight: 61 kg

DRUGS (16)
  1. RITUXIMAB. [Suspect]
     Active Substance: RITUXIMAB
     Indication: CHRONIC LYMPHOCYTIC LEUKAEMIA
     Route: 065
  2. FLUDARABINE [Suspect]
     Active Substance: FLUDARABINE PHOSPHATE
     Indication: ANAEMIA
  3. IDELALISIB [Suspect]
     Active Substance: IDELALISIB
     Indication: SPLENOMEGALY
  4. IVIG [Concomitant]
     Active Substance: HUMAN IMMUNOGLOBULIN G
     Route: 058
  5. CHLORAMBUCIL [Suspect]
     Active Substance: CHLORAMBUCIL
     Indication: CHRONIC LYMPHOCYTIC LEUKAEMIA
     Route: 065
  6. FLUDARABINE [Suspect]
     Active Substance: FLUDARABINE PHOSPHATE
     Indication: SPLENOMEGALY
  7. CHLORAMBUCIL [Suspect]
     Active Substance: CHLORAMBUCIL
     Indication: ANAEMIA
  8. FLUDARABINE [Suspect]
     Active Substance: FLUDARABINE PHOSPHATE
     Indication: THROMBOCYTOPENIA
  9. CALCIUM CARBONATE. [Concomitant]
     Active Substance: CALCIUM CARBONATE
  10. LYSINE [Concomitant]
     Active Substance: LYSINE
  11. IDELALISIB [Suspect]
     Active Substance: IDELALISIB
     Indication: CHRONIC LYMPHOCYTIC LEUKAEMIA
     Route: 065
  12. IDELALISIB [Suspect]
     Active Substance: IDELALISIB
     Indication: ANAEMIA
  13. IVIG [Concomitant]
     Active Substance: HUMAN IMMUNOGLOBULIN G
     Route: 042
  14. FLUDARABINE [Suspect]
     Active Substance: FLUDARABINE PHOSPHATE
     Indication: CHRONIC LYMPHOCYTIC LEUKAEMIA
     Route: 065
  15. IDELALISIB [Suspect]
     Active Substance: IDELALISIB
     Indication: THROMBOCYTOPENIA
  16. VITAMIN C [Concomitant]
     Active Substance: ASCORBIC ACID

REACTIONS (9)
  - Respiratory tract infection [Unknown]
  - Genital herpes simplex [Unknown]
  - Lyme disease [Unknown]
  - Herpes zoster [Unknown]
  - Lymphadenitis viral [Unknown]
  - Fungal infection [Unknown]
  - Varicella zoster virus infection [Unknown]
  - Squamous cell carcinoma of skin [Unknown]
  - Hypogammaglobulinaemia [Unknown]
